FAERS Safety Report 21763278 (Version 3)
Quarter: 2024Q1

REPORT INFORMATION
  Report Type: Spontaneous
  Country: TW (occurrence: TW)
  Receive Date: 20221221
  Receipt Date: 20240319
  Transmission Date: 20240410
  Serious: Yes (Other)
  Sender: FDA-Public Use
  Company Number: TW-009507513-2212TWN006398

PATIENT
  Age: 52 Year
  Sex: Male
  Weight: 51 kg

DRUGS (17)
  1. PEMBROLIZUMAB [Suspect]
     Active Substance: PEMBROLIZUMAB
     Indication: Adenocarcinoma gastric
     Dosage: 100 MILLIGRAM
     Dates: start: 20220121, end: 20220121
  2. PEMBROLIZUMAB [Suspect]
     Active Substance: PEMBROLIZUMAB
     Dosage: 100 MILLIGRAM
     Dates: start: 20220217, end: 20220217
  3. PEMBROLIZUMAB [Suspect]
     Active Substance: PEMBROLIZUMAB
     Dosage: 100 MILLIGRAM
     Dates: start: 20220323, end: 20220323
  4. PEMBROLIZUMAB [Suspect]
     Active Substance: PEMBROLIZUMAB
     Dosage: 100 MILLIGRAM
     Dates: start: 20220414, end: 20220414
  5. PEMBROLIZUMAB [Suspect]
     Active Substance: PEMBROLIZUMAB
     Dosage: 100 MILLIGRAM
     Dates: start: 20220506, end: 20220506
  6. PEMBROLIZUMAB [Suspect]
     Active Substance: PEMBROLIZUMAB
     Dosage: 100 MILLIGRAM
     Dates: start: 20220602, end: 20220602
  7. PEMBROLIZUMAB [Suspect]
     Active Substance: PEMBROLIZUMAB
     Dosage: 100 MILLIGRAM
     Dates: start: 20220630, end: 20220630
  8. PEMBROLIZUMAB [Suspect]
     Active Substance: PEMBROLIZUMAB
     Dosage: 100 MILLIGRAM
     Dates: start: 20220811, end: 20220811
  9. PEMBROLIZUMAB [Suspect]
     Active Substance: PEMBROLIZUMAB
     Dosage: UNK
     Dates: start: 202211, end: 202305
  10. PEMBROLIZUMAB [Suspect]
     Active Substance: PEMBROLIZUMAB
     Dosage: UNK
     Dates: start: 202310
  11. HERCEPTIN [Suspect]
     Active Substance: TRASTUZUMAB
     Indication: Adenocarcinoma gastric
     Dosage: UNK
     Dates: start: 20211206, end: 20220811
  12. HERCEPTIN [Suspect]
     Active Substance: TRASTUZUMAB
     Dosage: UNK
     Dates: start: 202211, end: 202305
  13. HERCEPTIN [Suspect]
     Active Substance: TRASTUZUMAB
     Dosage: UNK
     Dates: start: 202310
  14. FLUOROURACIL [Suspect]
     Active Substance: FLUOROURACIL
     Indication: Adenocarcinoma gastric
     Dosage: UNK
     Dates: start: 202211, end: 202305
  15. OXALIPLATIN [Suspect]
     Active Substance: OXALIPLATIN
     Indication: Adenocarcinoma gastric
     Dosage: UNK
     Dates: start: 202211, end: 202302
  16. CISPLATIN [Suspect]
     Active Substance: CISPLATIN
     Indication: Adenocarcinoma gastric
     Dosage: UNK
     Dates: start: 20220914
  17. UFT [Suspect]
     Active Substance: TEGAFUR\URACIL
     Indication: Adenocarcinoma gastric
     Dosage: UNK
     Dates: start: 202305, end: 202308

REACTIONS (19)
  - Inflammation [Unknown]
  - Gastrointestinal scarring [Unknown]
  - Gastric mucosal lesion [Unknown]
  - Hyperbilirubinaemia [Unknown]
  - Ascites [Unknown]
  - Multiple organ dysfunction syndrome [Unknown]
  - Hepatitis B [Unknown]
  - Malignant neoplasm progression [Unknown]
  - Renal failure [Unknown]
  - Pleural effusion [Unknown]
  - Therapy partial responder [Recovering/Resolving]
  - Inappropriate schedule of product administration [Unknown]
  - Inappropriate schedule of product administration [Unknown]
  - Inappropriate schedule of product administration [Unknown]
  - Inappropriate schedule of product administration [Unknown]
  - Inappropriate schedule of product administration [Unknown]
  - Inappropriate schedule of product administration [Unknown]
  - Incorrect dose administered [Unknown]
  - Product use issue [Unknown]

NARRATIVE: CASE EVENT DATE: 20220101
